FAERS Safety Report 5150223-1 (Version None)
Quarter: 2006Q4

REPORT INFORMATION
  Report Type: 
  Country: None (occurrence: None)
  Receive Date: 20061108
  Receipt Date: 20061026
  Transmission Date: 20070319
  Serious: Yes (Hospitalization, Other)
  Sender: FDA-Public Use
  Company Number: 2006132013

PATIENT
  Sex: Female
  Weight: 54.4316 kg

DRUGS (11)
  1. NEURONTIN [Suspect]
     Indication: COMPLEX REGIONAL PAIN SYNDROME
     Dosage: 600 MG (300 MG, 2 IN 1 D)
  2. LYRICA [Suspect]
     Indication: COMPLEX REGIONAL PAIN SYNDROME
     Dosage: 200 MG (100 MG, 2 IN 1 D)
     Dates: start: 20060101
  3. GLIMEPIRIDE [Suspect]
     Indication: DIABETES MELLITUS
  4. GABAPENTIN [Suspect]
     Indication: COMPLEX REGIONAL PAIN SYNDROME
     Dosage: 600 MG (300 MG, 2 IN 1 D)
     Dates: start: 20060914
  5. ULTRAM [Concomitant]
  6. CATAPRES [Concomitant]
  7. BACLOFEN [Concomitant]
  8. NITROGLYCERIN [Concomitant]
  9. OMEPRAZOLE [Concomitant]
  10. DIAZEPAM [Concomitant]
  11. ATENOLOL [Concomitant]

REACTIONS (8)
  - DIABETES MELLITUS [None]
  - DIZZINESS [None]
  - DRUG EFFECT DECREASED [None]
  - FEELING ABNORMAL [None]
  - LOSS OF CONSCIOUSNESS [None]
  - OEDEMA PERIPHERAL [None]
  - WEIGHT INCREASED [None]
  - WEIGHT LOSS POOR [None]
